FAERS Safety Report 13006694 (Version 1)
Quarter: 2016Q4

REPORT INFORMATION
  Report Type: Spontaneous
  Country: CA (occurrence: CA)
  Receive Date: 20161207
  Receipt Date: 20161207
  Transmission Date: 20170207
  Serious: Yes (Death, Other)
  Sender: FDA-Public Use
  Company Number: CA-TEVA-718479ACC

PATIENT
  Age: 49 Year
  Sex: Male

DRUGS (2)
  1. CITALOPRAM [Suspect]
     Active Substance: CITALOPRAM HYDROBROMIDE
     Dosage: 20 MILLIGRAM DAILY; 10 MG TITRATED UP TO 20MG (3 MONTHS DURATION)
     Dates: end: 201408
  2. CITALOPRAM [Suspect]
     Active Substance: CITALOPRAM HYDROBROMIDE
     Indication: ANXIETY
     Dosage: 10 MILLIGRAM DAILY; 10 MG TITRATED UP TO 20MG (3 MONTHS DURATION)
     Route: 048
     Dates: start: 201405

REACTIONS (3)
  - Somnolence [Fatal]
  - Road traffic accident [Fatal]
  - Tremor [Unknown]

NARRATIVE: CASE EVENT DATE: 201405
